FAERS Safety Report 9840473 (Version 2)
Quarter: 2014Q1

REPORT INFORMATION
  Report Type: Spontaneous
  Country: FR (occurrence: FR)
  Receive Date: 20140124
  Receipt Date: 20140212
  Transmission Date: 20141002
  Serious: Yes (Hospitalization)
  Sender: FDA-Public Use
  Company Number: FR-JNJFOC-20140111964

PATIENT
  Age: 69 Year
  Sex: Male
  Weight: 98 kg

DRUGS (12)
  1. XARELTO [Suspect]
     Indication: CEREBROVASCULAR ACCIDENT PROPHYLAXIS
     Route: 048
     Dates: start: 20131003, end: 20140109
  2. XARELTO [Suspect]
     Indication: ATRIAL FIBRILLATION
     Route: 048
     Dates: start: 20131003, end: 20140109
  3. LODALES [Suspect]
     Indication: BLOOD CHOLESTEROL INCREASED
     Route: 048
     Dates: start: 2000
  4. INNOHEP [Suspect]
     Indication: ANTICOAGULANT THERAPY
     Route: 065
     Dates: start: 20140110, end: 20140113
  5. STILNOX [Suspect]
     Indication: SLEEP DISORDER
     Route: 065
  6. COAPROVEL [Concomitant]
     Indication: HYPERTENSION
     Route: 048
     Dates: start: 2000
  7. CLOPIDOGREL [Concomitant]
     Indication: PLATELET AGGREGATION INHIBITION
     Route: 048
     Dates: start: 2000, end: 20131003
  8. NEBILOX [Concomitant]
     Indication: PRODUCT USED FOR UNKNOWN INDICATION
     Route: 048
     Dates: start: 2000
  9. DIFFU K [Concomitant]
     Indication: BLOOD POTASSIUM ABNORMAL
     Route: 048
     Dates: start: 20131013
  10. MONOTILDIEM [Concomitant]
     Indication: HYPERTENSION
     Route: 048
     Dates: start: 2000
  11. JOSIR [Concomitant]
     Indication: BENIGN PROSTATIC HYPERPLASIA
     Route: 048
     Dates: start: 20130522
  12. HYPERIUM [Concomitant]
     Indication: HYPERTENSION
     Route: 048
     Dates: start: 2000

REACTIONS (5)
  - Chest discomfort [Not Recovered/Not Resolved]
  - Platelet count decreased [Not Recovered/Not Resolved]
  - Pain in extremity [Unknown]
  - Dizziness [Unknown]
  - Vomiting [Unknown]
